FAERS Safety Report 6444338-5 (Version None)
Quarter: 2009Q4

REPORT INFORMATION
  Report Type: 
  Country: None (occurrence: None)
  Receive Date: 20091117
  Receipt Date: 20091117
  Transmission Date: 20100525
  Serious: Yes (Hospitalization)
  Sender: FDA-Public Use
  Company Number: None

PATIENT
  Age: 45 Year
  Sex: Male
  Weight: 91 kg

DRUGS (10)
  1. PHENYTOIN [Suspect]
     Dosage: 50 MG, UNKNOWN, UNKNOWN
  2. AVASTIN [Suspect]
     Indication: GLIOBLASTOMA MULTIFORME
     Dosage: 15 MG/KG, UNKNOWN, INTRAVENOUS
     Route: 042
     Dates: start: 20090721
  3. NEULASTA [Suspect]
     Indication: CHEMOTHERAPY
     Dosage: 6 MG, UNKNOWN, SUBCUTANEOUS
     Route: 058
     Dates: start: 20090721
  4. NEUPOGEN [Suspect]
     Indication: CHEMOTHERAPY
  5. CARBOPLATIN [Concomitant]
  6. DEXAMETHASONE TAB [Concomitant]
  7. METOCLOPRAMIDE [Concomitant]
  8. ONDANSETRON [Concomitant]
  9. VALPROATE SODIUM [Concomitant]
  10. WARFARIN SODIUM [Concomitant]

REACTIONS (8)
  - BODY TEMPERATURE INCREASED [None]
  - CONFUSIONAL STATE [None]
  - CYTOKINE STORM [None]
  - DEEP VEIN THROMBOSIS [None]
  - DELIRIUM [None]
  - DERMATITIS ALLERGIC [None]
  - IMPETIGO [None]
  - PETECHIAE [None]
